FAERS Safety Report 16665495 (Version 2)
Quarter: 2019Q3

REPORT INFORMATION
  Report Type: Spontaneous
  Country: RS (occurrence: RS)
  Receive Date: 20190803
  Receipt Date: 20190809
  Transmission Date: 20191004
  Serious: Yes (Life-Threatening, Other)
  Sender: FDA-Public Use
  Company Number: PHHY2019RS176988

PATIENT
  Age: 32 Year
  Sex: Male

DRUGS (1)
  1. PREDNISONE. [Suspect]
     Active Substance: PREDNISONE
     Indication: OPTIC NEURITIS
     Dosage: 40 MG, QD
     Route: 048

REACTIONS (12)
  - Nervousness [Unknown]
  - Hyperhidrosis [Unknown]
  - Tremor [Unknown]
  - Phaeochromocytoma [Unknown]
  - Hypertensive crisis [Unknown]
  - Cerebral haematoma [Unknown]
  - Headache [Unknown]
  - Cerebral haemorrhage [Recovered/Resolved with Sequelae]
  - Hemiplegia [Unknown]
  - Somnolence [Unknown]
  - Palpitations [Unknown]
  - Abdominal pain [Unknown]

NARRATIVE: CASE EVENT DATE: 201308
